FAERS Safety Report 7937525-8 (Version None)
Quarter: 2011Q4

REPORT INFORMATION
  Report Type: 
  Country: None (occurrence: None)
  Receive Date: 20111123
  Receipt Date: 20111114
  Transmission Date: 20120403
  Serious: Yes (Hospitalization, Other)
  Sender: FDA-Public Use
  Company Number: US-BAYER-2011-056966

PATIENT
  Age: 33 Year
  Sex: Female
  Weight: 67 kg

DRUGS (10)
  1. PERCOCET [Concomitant]
     Dosage: UNK
     Dates: start: 20000101
  2. IBUPROFEN [Concomitant]
     Dosage: UNK UNK, PRN
     Dates: start: 20080101, end: 20090101
  3. VICODIN [Concomitant]
     Dosage: UNK
     Dates: start: 20000101
  4. TRAMADOL HCL [Concomitant]
     Dosage: UNK
     Dates: start: 20000101
  5. DEPAKOTE [Concomitant]
     Dosage: UNK
     Dates: start: 20000101
  6. YAZ [Suspect]
     Indication: CONTRACEPTION
  7. YAZ [Suspect]
     Indication: PREMENSTRUAL SYNDROME
     Dosage: UNK
     Dates: start: 20081101, end: 20090601
  8. TYLENOL W/ CODEINE NO. 3 [Concomitant]
     Dosage: UNK
     Route: 048
     Dates: start: 20090612
  9. FLAGYL [Concomitant]
     Dosage: UNK
     Dates: start: 20000101
  10. PROVA [Concomitant]
     Dosage: 2.5 MG, UNK
     Route: 048
     Dates: start: 20090515

REACTIONS (5)
  - PAIN [None]
  - GALLBLADDER DISORDER [None]
  - CHOLECYSTITIS CHRONIC [None]
  - BILIARY DYSKINESIA [None]
  - MULTIPLE INJURIES [None]
